FAERS Safety Report 5983752-9 (Version None)
Quarter: 2008Q4

REPORT INFORMATION
  Report Type: 
  Country: None (occurrence: None)
  Receive Date: 20081205
  Receipt Date: 20081205
  Transmission Date: 20090506
  Serious: Yes (Death, Other)
  Sender: FDA-Public Use
  Company Number: None

PATIENT
  Age: 66 Year
  Sex: Female
  Weight: 96.6 kg

DRUGS (1)
  1. NOVOSEVEN [Suspect]
     Indication: COAGULATION TIME PROLONGED
     Dosage: 4.8 MG (50 MCG/KG) ONCE IV
     Route: 042
     Dates: start: 20080817

REACTIONS (15)
  - ACUTE MYOCARDIAL INFARCTION [None]
  - APHASIA [None]
  - CARDIAC VALVE VEGETATION [None]
  - CEREBRAL HAEMATOMA [None]
  - ELECTROCARDIOGRAM ST SEGMENT ELEVATION [None]
  - EMBOLIC STROKE [None]
  - ENDOCARDITIS [None]
  - ISCHAEMIC STROKE [None]
  - LETHARGY [None]
  - PERIPHERAL COLDNESS [None]
  - PERIPHERAL EMBOLISM [None]
  - PULSE ABSENT [None]
  - RENAL IMPAIRMENT [None]
  - RENAL INFARCT [None]
  - SPLENIC INFARCTION [None]
